FAERS Safety Report 8950505 (Version 1)
Quarter: 2012Q4

REPORT INFORMATION
  Report Type: 
  Country: JP (occurrence: JP)
  Receive Date: 20121207
  Receipt Date: 20121207
  Transmission Date: 20130627
  Serious: Yes (Hospitalization)
  Sender: FDA-Public Use
  Company Number: JP-AMGEN-JPNCT2012025234

PATIENT
  Age: 88 Year
  Sex: Male
  Weight: 51 kg

DRUGS (11)
  1. PANITUMUMAB [Suspect]
     Indication: COLORECTAL CANCER
     Dosage: 300 mg, q2wk
     Route: 041
     Dates: start: 20111222, end: 20120210
  2. MINOMYCIN [Concomitant]
     Indication: PROPHYLAXIS
     Dosage: 100 mg, bid
     Route: 048
     Dates: start: 20111222
  3. LOXONIN [Concomitant]
     Indication: ANALGESIC THERAPY
     Dosage: 60 mg, tid
     Route: 048
     Dates: start: 20111112
  4. MUCOSTA [Concomitant]
     Indication: PROPHYLAXIS
     Dosage: UNK UNK, tid
     Route: 048
     Dates: start: 20111103
  5. FERROMIA [Concomitant]
     Indication: IRON DEFICIENCY ANAEMIA
     Dosage: UNK UNK, bid
     Route: 048
     Dates: start: 20120110
  6. LASIX [Concomitant]
     Indication: DIURETIC THERAPY
     Dosage: 40 mg, qd
     Route: 048
     Dates: start: 20111103
  7. HARNAL [Concomitant]
     Indication: POLLAKIURIA
     Dosage: 0.2 mg, qd
     Route: 048
     Dates: start: 20111103
  8. DETRUSITOL [Concomitant]
     Indication: POLLAKIURIA
     Dosage: 4 mg, qd
     Route: 048
     Dates: start: 20111103
  9. HALCION [Concomitant]
     Indication: INSOMNIA
     Dosage: 0.125 mg, qd
     Route: 048
     Dates: start: 20111103
  10. MAGNESIUM OXIDE [Concomitant]
     Indication: MINERAL SUPPLEMENTATION
     Dosage: 0.33 g, tid
     Route: 048
     Dates: start: 20120122
  11. MEROPEN [Concomitant]
     Indication: URINARY TRACT INFECTION
     Dosage: 0.5 g, bid
     Route: 042
     Dates: start: 20120209, end: 20120220

REACTIONS (2)
  - Pleural effusion [Not Recovered/Not Resolved]
  - Hypoalbuminaemia [Unknown]
